FAERS Safety Report 23142889 (Version 1)
Quarter: 2023Q4

REPORT INFORMATION
  Report Type: Report from Study
  Country: NZ (occurrence: NZ)
  Receive Date: 20231103
  Receipt Date: 20231103
  Transmission Date: 20240110
  Serious: Yes (Hospitalization)
  Sender: FDA-Public Use
  Company Number: NZ-Eisai Medical Research-EC-2023-140214

PATIENT
  Age: 64 Year
  Sex: Female
  Weight: 57 kg

DRUGS (18)
  1. LENVATINIB [Suspect]
     Active Substance: LENVATINIB
     Indication: Endometrial adenocarcinoma
     Route: 048
     Dates: start: 20230420, end: 20230502
  2. LENVATINIB [Suspect]
     Active Substance: LENVATINIB
     Route: 048
     Dates: start: 20230510, end: 20230510
  3. LENVATINIB [Suspect]
     Active Substance: LENVATINIB
     Route: 048
     Dates: start: 20230522, end: 20230522
  4. LENVATINIB [Suspect]
     Active Substance: LENVATINIB
     Route: 048
     Dates: start: 20230629, end: 20230629
  5. PEMBROLIZUMAB [Suspect]
     Active Substance: PEMBROLIZUMAB
     Indication: Endometrial adenocarcinoma
     Route: 041
     Dates: start: 20230420, end: 20230420
  6. PEMBROLIZUMAB [Suspect]
     Active Substance: PEMBROLIZUMAB
     Route: 041
     Dates: start: 20230530, end: 20230530
  7. PEMBROLIZUMAB [Suspect]
     Active Substance: PEMBROLIZUMAB
     Route: 041
     Dates: start: 20230713, end: 20230713
  8. BELZUTIFAN [Suspect]
     Active Substance: BELZUTIFAN
     Indication: Endometrial adenocarcinoma
     Dosage: 120 MG FLUCTUATED DOSE
     Route: 048
     Dates: start: 20230420, end: 20230502
  9. BELZUTIFAN [Suspect]
     Active Substance: BELZUTIFAN
     Dosage: 120 MG FLUCTUATED DOSAGE
     Route: 048
     Dates: start: 20230530, end: 20230621
  10. BELZUTIFAN [Suspect]
     Active Substance: BELZUTIFAN
     Dosage: 120 MG FLUCTUATED DOSAGE
     Route: 048
     Dates: start: 20230622, end: 20230629
  11. BELZUTIFAN [Suspect]
     Active Substance: BELZUTIFAN
     Dosage: 120 MG FLUCTUATED DOSAGE
     Route: 048
     Dates: start: 20230713, end: 20230730
  12. PERINDOPRIL [Suspect]
     Active Substance: PERINDOPRIL
     Indication: Hypertension
     Route: 048
     Dates: start: 20230427, end: 20230511
  13. ACETAMINOPHEN [Concomitant]
     Active Substance: ACETAMINOPHEN
     Dates: start: 20230306
  14. OXYCODONE HYDROCHLORIDE [Concomitant]
     Active Substance: OXYCODONE HYDROCHLORIDE
     Dates: start: 20230427
  15. CELEBREX [Concomitant]
     Active Substance: CELECOXIB
     Dates: start: 20230306, end: 20230311
  16. TRAMADOL HYDROCHLORIDE [Concomitant]
     Active Substance: TRAMADOL HYDROCHLORIDE
     Dates: start: 20230306, end: 20230427
  17. OMEPRAZOLE [Concomitant]
     Active Substance: OMEPRAZOLE
     Dates: start: 20230315, end: 20230510
  18. DOCUSATE SODIUM\SENNOSIDES A AND B [Concomitant]
     Active Substance: DOCUSATE SODIUM\SENNOSIDES A AND B
     Dates: start: 20230322

REACTIONS (4)
  - Vaginal infection [Recovered/Resolved]
  - Hypotension [Recovered/Resolved]
  - Thrombocytopenia [Recovered/Resolved]
  - Anaemia [Recovered/Resolved]

NARRATIVE: CASE EVENT DATE: 20230503
